FAERS Safety Report 6553834-1 (Version None)
Quarter: 2010Q1

REPORT INFORMATION
  Report Type: 
  Country: None (occurrence: None)
  Receive Date: 20100127
  Receipt Date: 20100118
  Transmission Date: 20100710
  Serious: Yes (Other)
  Sender: FDA-Public Use
  Company Number: DE-TEVA-221442ISR

PATIENT
  Age: 54 Year
  Sex: Female
  Weight: 63 kg

DRUGS (1)
  1. FLUOXETINE [Suspect]
     Indication: DEPRESSED MOOD
     Route: 048
     Dates: start: 20100106

REACTIONS (1)
  - CONFUSIONAL STATE [None]
